FAERS Safety Report 21012751 (Version 4)
Quarter: 2022Q4

REPORT INFORMATION
  Report Type: Spontaneous
  Country: JP (occurrence: JP)
  Receive Date: 20220627
  Receipt Date: 20221129
  Transmission Date: 20230113
  Serious: Yes (Other)
  Sender: FDA-Public Use
  Company Number: JP-ONO-2022JP016255

PATIENT
  Age: 70 Year
  Sex: Female

DRUGS (2)
  1. OPDIVO [Suspect]
     Active Substance: NIVOLUMAB
     Indication: Pleural mesothelioma malignant
     Dosage: 360 MG
     Route: 041
     Dates: start: 20220330
  2. YERVOY [Suspect]
     Active Substance: IPILIMUMAB
     Indication: Pleural mesothelioma malignant
     Route: 041
     Dates: start: 20220330

REACTIONS (2)
  - Immunoglobulin G4 related disease [Unknown]
  - Monoclonal immunoglobulin increased [Unknown]

NARRATIVE: CASE EVENT DATE: 20220425
